FAERS Safety Report 9435956 (Version 2)
Quarter: 2013Q3

REPORT INFORMATION
  Report Type: Spontaneous
  Country: US (occurrence: US)
  Receive Date: 20130801
  Receipt Date: 20130812
  Transmission Date: 20140515
  Serious: Yes (Hospitalization)
  Sender: FDA-Public Use
  Company Number: US-009507513-1308USA000012

PATIENT
  Age: 9 Year
  Sex: Male

DRUGS (6)
  1. SAPHRIS [Suspect]
     Indication: BIPOLAR DISORDER
     Dosage: 5 MG, BID
     Route: 048
     Dates: start: 20130728
  2. SAPHRIS [Suspect]
     Indication: AGGRESSION
  3. TENEX [Concomitant]
  4. LITHEUM [Concomitant]
  5. METFORMIN [Concomitant]
  6. ZYPREXA [Concomitant]

REACTIONS (4)
  - Nausea [Unknown]
  - Product taste abnormal [Unknown]
  - Drug administered to patient of inappropriate age [Unknown]
  - Off label use [Unknown]
